FAERS Safety Report 20768496 (Version 6)
Quarter: 2023Q1

REPORT INFORMATION
  Report Type: Spontaneous
  Country: US (occurrence: US)
  Receive Date: 20220429
  Receipt Date: 20230131
  Transmission Date: 20230417
  Serious: Yes (Other)
  Sender: FDA-Public Use
  Company Number: US-NOVARTISTESTPH-NVSC2022US099149

PATIENT
  Sex: Male

DRUGS (1)
  1. TABRECTA [Suspect]
     Active Substance: CAPMATINIB
     Indication: Lung neoplasm malignant
     Dosage: 800 MG, QD
     Route: 065
     Dates: start: 20220131

REACTIONS (5)
  - Deafness [Not Recovered/Not Resolved]
  - Lymphoedema [Unknown]
  - Fluid retention [Unknown]
  - Oedema [Unknown]
  - Oedema peripheral [Unknown]
